FAERS Safety Report 19185379 (Version 1)
Quarter: 2021Q2

REPORT INFORMATION
  Report Type: Spontaneous
  Country: US (occurrence: US)
  Receive Date: 20210427
  Receipt Date: 20210427
  Transmission Date: 20210717
  Serious: Yes (Hospitalization)
  Sender: FDA-Public Use
  Company Number: None

PATIENT
  Sex: Female

DRUGS (9)
  1. XARELTO [Concomitant]
     Active Substance: RIVAROXABAN
  2. ENBREL [Suspect]
     Active Substance: ETANERCEPT
     Indication: RHEUMATOID ARTHRITIS
     Dosage: ?          OTHER FREQUENCY:ONCE A WEEK;?
     Route: 058
  3. COLACE [Concomitant]
     Active Substance: DOCUSATE SODIUM
  4. NIFEDIPINE. [Concomitant]
     Active Substance: NIFEDIPINE
  5. IRBESARTAN. [Concomitant]
     Active Substance: IRBESARTAN
  6. HYDROCHLOROTHIAZIDE. [Concomitant]
     Active Substance: HYDROCHLOROTHIAZIDE
  7. TAMSULOSIN [Concomitant]
     Active Substance: TAMSULOSIN
  8. NAPROXEN. [Concomitant]
     Active Substance: NAPROXEN
  9. OXYBUTYNIN. [Concomitant]
     Active Substance: OXYBUTYNIN CHLORIDE

REACTIONS (1)
  - Nephrolithiasis [None]
